FAERS Safety Report 11646384 (Version 2)
Quarter: 2015Q4

REPORT INFORMATION
  Report Type: Spontaneous
  Country: US (occurrence: US)
  Receive Date: 20151020
  Receipt Date: 20151217
  Transmission Date: 20160304
  Serious: Yes (Other)
  Sender: FDA-Public Use
  Company Number: US-ROCHE-1625073

PATIENT
  Age: 73 Year
  Sex: Male
  Weight: 87.17 kg

DRUGS (2)
  1. ESBRIET [Suspect]
     Active Substance: PIRFENIDONE
     Indication: IDIOPATHIC PULMONARY FIBROSIS
     Dosage: 3 CAPSULE THREE TIMES IN A DAY
     Route: 048
     Dates: start: 20150128
  2. ATORVASTATIN [Concomitant]
     Active Substance: ATORVASTATIN

REACTIONS (4)
  - Contusion [Unknown]
  - Paraesthesia [Unknown]
  - Muscle rupture [Unknown]
  - Arthralgia [Unknown]

NARRATIVE: CASE EVENT DATE: 20151211
